FAERS Safety Report 25586482 (Version 2)
Quarter: 2025Q3

REPORT INFORMATION
  Report Type: Spontaneous
  Country: US (occurrence: US)
  Receive Date: 20250721
  Receipt Date: 20250728
  Transmission Date: 20251020
  Serious: Yes (Other)
  Sender: PFIZER
  Company Number: US-PFIZER INC-202500146529

PATIENT
  Age: 62 Year
  Sex: Female

DRUGS (1)
  1. XELJANZ XR [Suspect]
     Active Substance: TOFACITINIB CITRATE
     Dosage: 11 MG, 1X/DAY (11 MG TABLET EXTENDED RELEASE, 1 TABLET ORALLY ONCE A DAY)
     Route: 048

REACTIONS (7)
  - Hypoaesthesia [Unknown]
  - Burning sensation [Unknown]
  - Paraesthesia [Unknown]
  - Electric shock sensation [Unknown]
  - Muscular weakness [Unknown]
  - Clumsiness [Unknown]
  - Joint swelling [Unknown]
